FAERS Safety Report 9278271 (Version 2)
Quarter: 2013Q2

REPORT INFORMATION
  Report Type: Report from Study
  Country: US (occurrence: US)
  Receive Date: 20130508
  Receipt Date: 20130523
  Transmission Date: 20140414
  Serious: Yes (Hospitalization)
  Sender: FDA-Public Use
  Company Number: US-PFIZER INC-2013137071

PATIENT
  Age: 80 Year
  Sex: Male
  Weight: 84.4 kg

DRUGS (16)
  1. TEMSIROLIMUS [Suspect]
     Indication: METASTATIC RENAL CELL CARCINOMA
     Dosage: 25 MG, UNK
     Route: 065
  2. BEVACIZUMAB [Suspect]
     Indication: METASTATIC RENAL CELL CARCINOMA
     Dosage: (10 MG,1 IN 2 WK)
     Route: 065
  3. ATORVASTATIN CALCIUM [Concomitant]
     Dosage: 80 MG, (1 DF) UNK
     Route: 048
  4. DIPHENOXYLATE W/ATROPINE SULFATE [Concomitant]
     Dosage: 2.5 MG - 0.025 MG (1 DF,EVERY 8 HOURS AS REQUIRED)
     Route: 048
  5. LOPERAMIDE [Concomitant]
     Indication: DIARRHOEA
     Dosage: 2 DF (1 IN 6 HR)
     Route: 048
  6. FINASTERIDE [Concomitant]
     Dosage: 1DF
     Route: 048
  7. FLUOCINONIDE [Concomitant]
     Indication: RASH
     Dosage: 2 IN 1 D
  8. TAMSULOSIN [Concomitant]
     Dosage: 1 DF
     Route: 048
  9. TRIAMCINOLONE [Concomitant]
     Indication: PRURITUS
     Dosage: 3 IN 1 D
  10. DIOVAN (VALSARTAN) [Concomitant]
     Dosage: 1 DF
     Route: 048
  11. TYLENOL [Concomitant]
     Dosage: UNK
  12. CALCIUM CARBONATE [Concomitant]
     Dosage: UNK
  13. BENADRYL [Concomitant]
     Dosage: 2 DF
     Route: 048
  14. FAMOTIDINE [Concomitant]
     Dosage: 1 DF
     Route: 048
  15. METAMUCIL [Concomitant]
     Dosage: UNK
  16. ONDANSETRON HYDROCHLORIDE [Concomitant]
     Indication: NAUSEA
     Dosage: 1 IN 8 HRS
     Route: 048

REACTIONS (1)
  - Dehydration [Unknown]
